FAERS Safety Report 11570739 (Version 1)
Quarter: 2015Q3

REPORT INFORMATION
  Report Type: Spontaneous
  Country: US (occurrence: US)
  Receive Date: 20150916
  Receipt Date: 20150916
  Transmission Date: 20151125
  Serious: No
  Sender: FDA-Public Use
  Company Number: US-ELI_LILLY_AND_COMPANY-US200909002746

PATIENT
  Sex: Female

DRUGS (2)
  1. FORTEO [Suspect]
     Active Substance: TERIPARATIDE
     Indication: OSTEOPOROSIS
     Dates: start: 200903, end: 20090818
  2. FORTEO [Suspect]
     Active Substance: TERIPARATIDE
     Dates: start: 20090901, end: 200909

REACTIONS (5)
  - Facial bones fracture [Recovering/Resolving]
  - Laceration [Recovering/Resolving]
  - Nerve injury [Unknown]
  - Fall [Recovered/Resolved with Sequelae]
  - Dysgeusia [Unknown]

NARRATIVE: CASE EVENT DATE: 20090623
